FAERS Safety Report 22364733 (Version 1)
Quarter: 2023Q2

REPORT INFORMATION
  Report Type: Spontaneous
  Country: US (occurrence: US)
  Receive Date: 20230525
  Receipt Date: 20230525
  Transmission Date: 20230721
  Serious: No
  Sender: FDA-Public Use
  Company Number: US-CADILA HEALTHCARE LIMITED-US-ZYDUS-086091

PATIENT

DRUGS (2)
  1. BOSENTAN [Suspect]
     Active Substance: BOSENTAN
     Indication: Pulmonary arterial hypertension
     Dosage: , BID
     Route: 048
     Dates: start: 20190605
  2. AMLODIPINE [Concomitant]
     Active Substance: AMLODIPINE BESYLATE
     Indication: Product used for unknown indication
     Dosage: UNK, UNK
     Route: 065

REACTIONS (8)
  - Dyspnoea exertional [Unknown]
  - Fatigue [Unknown]
  - Palpitations [Unknown]
  - Hypoaesthesia [Unknown]
  - Swelling [Unknown]
  - Mobility decreased [Unknown]
  - Ear infection [Unknown]
  - Tympanic membrane perforation [Unknown]
